FAERS Safety Report 9280895 (Version 1)
Quarter: 2013Q2

REPORT INFORMATION
  Report Type: Spontaneous
  Country: US (occurrence: None)
  Receive Date: 20130502
  Receipt Date: 20130502
  Transmission Date: 20140414
  Serious: Yes (Other)
  Sender: FDA-Public Use
  Company Number: AUR-APL-2013-03592

PATIENT
  Age: 35 Year
  Sex: Female

DRUGS (5)
  1. FLUOXETINE (FLUOXETINE) [Suspect]
     Indication: MAJOR DEPRESSION
  2. TRIAMCINOLONE [Suspect]
     Indication: PRODUCT USED FOR UNKNOWN INDICATION
     Dosage: (1 IN 3 M), INTRA-ARTICULAR?
  3. LACTULOSE (LACTULOSE) [Concomitant]
  4. ZOLPIDEM (ZOLPIDEM) [Concomitant]
  5. POTASSIUM CHLORIDE (POTASSIUM CHLORIDE) [Concomitant]

REACTIONS (8)
  - Blood pressure decreased [None]
  - Haemoglobin decreased [None]
  - Helicobacter infection [None]
  - Hypokalaemia [None]
  - Alkalosis [None]
  - Electrolyte imbalance [None]
  - Drug interaction [None]
  - Cushing^s syndrome [None]
